FAERS Safety Report 5950108-4 (Version None)
Quarter: 2008Q4

REPORT INFORMATION
  Report Type: 
  Country: None (occurrence: None)
  Receive Date: 20081112
  Receipt Date: 20081103
  Transmission Date: 20090506
  Serious: No
  Sender: FDA-Public Use
  Company Number: CA-PFIZER INC-2008063447

PATIENT
  Sex: Female
  Weight: 45.4 kg

DRUGS (1)
  1. CHAMPIX [Suspect]
     Indication: SMOKING CESSATION THERAPY
     Route: 048
     Dates: start: 20080613, end: 20080710

REACTIONS (15)
  - ABDOMINAL PAIN UPPER [None]
  - DEPRESSION [None]
  - DYSGEUSIA [None]
  - DYSPEPSIA [None]
  - FALL [None]
  - GAIT DISTURBANCE [None]
  - GINGIVAL BLEEDING [None]
  - HOT FLUSH [None]
  - IMPAIRED WORK ABILITY [None]
  - LIBIDO DECREASED [None]
  - NO ADVERSE EVENT [None]
  - OEDEMA PERIPHERAL [None]
  - PERSONALITY CHANGE [None]
  - VOMITING [None]
  - WEIGHT INCREASED [None]
